FAERS Safety Report 9593314 (Version 1)
Quarter: 2013Q4

REPORT INFORMATION
  Report Type: Report from Study
  Country: US (occurrence: US)
  Receive Date: 20131004
  Receipt Date: 20131004
  Transmission Date: 20140711
  Serious: No
  Sender: FDA-Public Use
  Company Number: US-ALEXION-A201301888

PATIENT
  Sex: Female

DRUGS (1)
  1. SOLIRIS [Suspect]
     Indication: PAROXYSMAL NOCTURNAL HAEMOGLOBINURIA
     Dosage: UNK
     Route: 042

REACTIONS (14)
  - Sleep apnoea syndrome [Unknown]
  - White blood cell count decreased [Unknown]
  - Dyspnoea [Unknown]
  - Malaise [Unknown]
  - Fatigue [Unknown]
  - Rhinorrhoea [Unknown]
  - Nasal congestion [Unknown]
  - Sneezing [Unknown]
  - Bronchitis [Unknown]
  - Neurological examination abnormal [Unknown]
  - Mental impairment [Unknown]
  - Dyspnoea [Unknown]
  - Chest pain [Unknown]
  - Haemoglobinuria [Unknown]
